FAERS Safety Report 8235453-4 (Version None)
Quarter: 2012Q1

REPORT INFORMATION
  Report Type: 
  Country: None (occurrence: None)
  Receive Date: 20120326
  Receipt Date: 20120319
  Transmission Date: 20120608
  Serious: Yes (Hospitalization, Other)
  Sender: FDA-Public Use
  Company Number: PHHY2012CH025066

PATIENT
  Age: 73 Year
  Sex: Female

DRUGS (8)
  1. CALCIMAGON-D3 [Concomitant]
  2. STARLIX [Concomitant]
  3. RIMACTANE [Suspect]
     Route: 048
     Dates: end: 20111231
  4. CUBICIN [Suspect]
     Dosage: 1 DF, QD
     Route: 042
     Dates: start: 20110101
  5. SINTROM [Concomitant]
  6. ENALAPRIL MALEATE [Concomitant]
  7. PANTOPRAZOLE [Concomitant]
  8. ALDACTONE [Concomitant]

REACTIONS (23)
  - EOSINOPHILIC PNEUMONIA [None]
  - GRAVITATIONAL OEDEMA [None]
  - DILATATION VENTRICULAR [None]
  - DILATATION ATRIAL [None]
  - LUNG INFILTRATION [None]
  - PLEURAL EFFUSION [None]
  - BRONCHOPNEUMONIA [None]
  - PULMONARY TOXICITY [None]
  - VENOUS PRESSURE JUGULAR INCREASED [None]
  - INTERSTITIAL LUNG DISEASE [None]
  - ORGANISING PNEUMONIA [None]
  - CARDIAC FAILURE CONGESTIVE [None]
  - OXYGEN SATURATION DECREASED [None]
  - PLEURAL FIBROSIS [None]
  - PULMONARY HAEMORRHAGE [None]
  - GENERAL PHYSICAL HEALTH DETERIORATION [None]
  - INFLAMMATION [None]
  - COUGH [None]
  - CARDIOMYOPATHY [None]
  - DYSPNOEA [None]
  - WEIGHT INCREASED [None]
  - AORTIC ARTERIOSCLEROSIS [None]
  - PULMONARY HYPERTENSION [None]
